FAERS Safety Report 15932445 (Version 1)
Quarter: 2019Q1

REPORT INFORMATION
  Report Type: Spontaneous
  Country: IL (occurrence: IL)
  Receive Date: 20190207
  Receipt Date: 20190207
  Transmission Date: 20190417
  Serious: Yes (Hospitalization)
  Sender: FDA-Public Use
  Company Number: IL-TEVA-2019-IL-1009288

PATIENT
  Age: 84 Year
  Sex: Male

DRUGS (6)
  1. LEVEMIR [Concomitant]
     Active Substance: INSULIN DETEMIR
  2. FUSID [Concomitant]
  3. TREGLUDEC [Concomitant]
     Active Substance: INSULIN DEGLUDEC
  4. VERAPAMIL [Suspect]
     Active Substance: VERAPAMIL HYDROCHLORIDE
     Route: 065
  5. TRAZODONE [Concomitant]
     Active Substance: TRAZODONE HYDROCHLORIDE
  6. CARDILOC [Concomitant]
     Active Substance: BISOPROLOL FUMARATE

REACTIONS (3)
  - Heart rate decreased [Unknown]
  - Bradycardia [Unknown]
  - Hypotension [Unknown]
